FAERS Safety Report 24685462 (Version 1)
Quarter: 2024Q4

REPORT INFORMATION
  Report Type: Report from Study
  Country: US (occurrence: US)
  Receive Date: 20241202
  Receipt Date: 20241202
  Transmission Date: 20250114
  Serious: Yes (Hospitalization)
  Sender: PFIZER
  Company Number: US-PFIZER INC-PV202400154134

PATIENT
  Sex: Male

DRUGS (8)
  1. DOXORUBICIN HYDROCHLORIDE [Suspect]
     Active Substance: DOXORUBICIN HYDROCHLORIDE
     Indication: Germ cell cancer
     Dosage: OVER 15 MINUTES EVERY 2- 3 WEEKS
     Route: 042
  2. PACLITAXEL [Suspect]
     Active Substance: PACLITAXEL
     Indication: Germ cell cancer
     Dosage: OVER ONE HOUR EVERY 2- 3 WEEKS
     Route: 042
  3. CISPLATIN [Suspect]
     Active Substance: CISPLATIN
     Indication: Germ cell cancer
     Dosage: OVER 2 HOURS EVERY 2- 3 WEEKS
     Route: 042
  4. DEXAMETHASONE [Concomitant]
     Active Substance: DEXAMETHASONE
     Indication: Premedication
     Dosage: 10 MG
     Route: 042
  5. FOSAPREPITANT [Concomitant]
     Active Substance: FOSAPREPITANT
     Indication: Premedication
     Dosage: 150 MG
  6. ONDANSETRON [Concomitant]
     Active Substance: ONDANSETRON
     Indication: Premedication
     Dosage: 16 MG
  7. FAMOTIDINE [Concomitant]
     Active Substance: FAMOTIDINE
     Indication: Premedication
     Dosage: 20 MG
  8. DIPHENHYDRAMINE [Concomitant]
     Active Substance: DIPHENHYDRAMINE
     Indication: Premedication
     Dosage: 50 MG

REACTIONS (3)
  - Pneumocystis jirovecii pneumonia [Unknown]
  - Dyspnoea [Unknown]
  - Thrombocytopenia [Unknown]
